FAERS Safety Report 5565468-6 (Version None)
Quarter: 2007Q4

REPORT INFORMATION
  Report Type: 
  Country: None (occurrence: None)
  Receive Date: 20071218
  Receipt Date: 20070228
  Transmission Date: 20080405
  Serious: No
  Sender: FDA-Public Use
  Company Number: US-BAUSCH-2007BL000648

PATIENT
  Age: 24 Year
  Sex: Female

DRUGS (2)
  1. NEOMYCIN AND POLYMXIN B SULFATES AND HYDROCORTISONE [Suspect]
     Indication: CORNEAL ABRASION
     Route: 047
     Dates: start: 20070224, end: 20070226
  2. HYDROCODONE BITARTRATE [Concomitant]
     Indication: EYE PAIN
     Route: 048
     Dates: start: 20070224

REACTIONS (10)
  - DRUG PRESCRIBING ERROR [None]
  - EYE IRRITATION [None]
  - EYE PAIN [None]
  - EYE PRURITUS [None]
  - EYELID OEDEMA [None]
  - INSOMNIA [None]
  - LACRIMATION INCREASED [None]
  - MEDICATION ERROR [None]
  - OCULAR HYPERAEMIA [None]
  - VISION BLURRED [None]
